FAERS Safety Report 23350657 (Version 1)
Quarter: 2023Q4

REPORT INFORMATION
  Report Type: Report from Study
  Country: TR (occurrence: TR)
  Receive Date: 20231229
  Receipt Date: 20231229
  Transmission Date: 20240110
  Serious: Yes (Death)
  Sender: FDA-Public Use
  Company Number: TR-GILEAD-2023-0655825

PATIENT
  Age: 18 Year
  Sex: Male

DRUGS (1)
  1. AMPHOTERICIN B [Suspect]
     Active Substance: AMPHOTERICIN B
     Indication: Mucormycosis
     Dosage: UNK UNK, UNKNOWN FREQ.(IMPREGNATED SPONGES WERE PLACED INTO THE DEBRIDEMENT CAVITY)
     Route: 061

REACTIONS (2)
  - Drug ineffective [Fatal]
  - Off label use [Unknown]
